FAERS Safety Report 6082112-2 (Version None)
Quarter: 2009Q1

REPORT INFORMATION
  Report Type: 
  Country: None (occurrence: None)
  Receive Date: 20090218
  Receipt Date: 20071218
  Transmission Date: 20090719
  Serious: Yes (Hospitalization)
  Sender: FDA-Public Use
  Company Number: US-BRISTOL-MYERS SQUIBB COMPANY-14428833

PATIENT

DRUGS (2)
  1. METFORMIN HCL [Suspect]
  2. BYETTA [Suspect]

REACTIONS (1)
  - HOSPITALISATION [None]
